FAERS Safety Report 25668677 (Version 1)
Quarter: 2025Q3

REPORT INFORMATION
  Report Type: Spontaneous
  Country: US (occurrence: US)
  Receive Date: 20250812
  Receipt Date: 20250812
  Transmission Date: 20251021
  Serious: No
  Sender: Kenvue
  Company Number: US-KENVUE-20250705865

PATIENT
  Age: 60 Year
  Sex: Male

DRUGS (5)
  1. IMODIUM [Suspect]
     Active Substance: LOPERAMIDE HYDROCHLORIDE
     Indication: Diarrhoea
     Route: 065
     Dates: start: 202506
  2. TYVASO DPI [Concomitant]
     Active Substance: TREPROSTINIL
     Indication: Pulmonary arterial hypertension
     Dosage: 16 MICROGRAM, FOUR TIME A DAY
     Dates: start: 20250603
  3. TYVASO DPI [Concomitant]
     Active Substance: TREPROSTINIL
     Dosage: 32 MICROGRAM, FOUR TIME A DAY
     Dates: start: 202506, end: 20250625
  4. TYVASO DPI [Concomitant]
     Active Substance: TREPROSTINIL
  5. OFEV [Concomitant]
     Active Substance: NINTEDANIB
     Indication: Product used for unknown indication
     Route: 065

REACTIONS (1)
  - Therapeutic product effect incomplete [Unknown]

NARRATIVE: CASE EVENT DATE: 20250601
